APPROVED DRUG PRODUCT: DICURIN PROCAINE
Active Ingredient: PROCAINE MERETHOXYLLINE; THEOPHYLLINE
Strength: 100MG/ML;50MG/ML
Dosage Form/Route: INJECTABLE;INJECTION
Application: N008869 | Product #001
Applicant: ELI LILLY AND CO
Approved: Approved Prior to Jan 1, 1982 | RLD: No | RS: No | Type: DISCN